FAERS Safety Report 8536561-0 (Version None)
Quarter: 2012Q3

REPORT INFORMATION
  Report Type: 
  Country: None (occurrence: None)
  Receive Date: 20120725
  Receipt Date: 20120720
  Transmission Date: 20120928
  Serious: Yes (Other)
  Sender: FDA-Public Use
  Company Number: IT-ROCHE-1079562

PATIENT
  Sex: Male

DRUGS (1)
  1. XOLAIR [Suspect]
     Indication: ASTHMA
     Dosage: CYLICAL
     Route: 058
     Dates: start: 20091009

REACTIONS (1)
  - VASCULAR ENDOTHELIAL GROWTH FACTOR OVEREXPRESSION [None]
